FAERS Safety Report 19932407 (Version 1)
Quarter: 2021Q4

REPORT INFORMATION
  Report Type: Spontaneous
  Country: US (occurrence: US)
  Receive Date: 20211007
  Receipt Date: 20211007
  Transmission Date: 20220303
  Serious: No
  Sender: FDA-Public Use
  Company Number: None

PATIENT
  Age: 63 Year
  Sex: Female
  Weight: 77.4 kg

DRUGS (18)
  1. CAPECITABINE [Suspect]
     Active Substance: CAPECITABINE
     Indication: Breast cancer
     Dosage: ?          OTHER FREQUENCY:BID FOR 14/21 DAYS;
     Route: 048
     Dates: start: 20210316
  2. ZOFRAN [Concomitant]
     Active Substance: ONDANSETRON HYDROCHLORIDE
  3. TRAMADOL [Concomitant]
     Active Substance: TRAMADOL
  4. TYLENOL EXTRA STRENGTH [Concomitant]
     Active Substance: ACETAMINOPHEN
  5. Tukysa 150mg [Concomitant]
  6. ALPRAZOLAM [Concomitant]
     Active Substance: ALPRAZOLAM
  7. ALPRAZOLAM [Concomitant]
     Active Substance: ALPRAZOLAM
  8. Aspirin EC 81mg [Concomitant]
  9. Biotin 5mg [Concomitant]
  10. Oyster Shell Calcium/Vitamin D [Concomitant]
  11. Vitamin D 1000IU [Concomitant]
  12. DIPHENHYDRAMINE [Concomitant]
     Active Substance: DIPHENHYDRAMINE
  13. FUROSEMIDE [Concomitant]
     Active Substance: FUROSEMIDE
  14. LETROZOLE [Concomitant]
     Active Substance: LETROZOLE
  15. Lortadine 10mg [Concomitant]
  16. LOSARTAN [Concomitant]
     Active Substance: LOSARTAN
  17. Metoprolol succinate ER 25mg [Concomitant]
  18. WARFARIN [Concomitant]
     Active Substance: WARFARIN

REACTIONS (1)
  - Skin exfoliation [None]

NARRATIVE: CASE EVENT DATE: 20211007
